FAERS Safety Report 6229653-2 (Version None)
Quarter: 2009Q2

REPORT INFORMATION
  Report Type: 
  Country: None (occurrence: None)
  Receive Date: 20090615
  Receipt Date: 20090608
  Transmission Date: 20091009
  Serious: Yes (Hospitalization)
  Sender: FDA-Public Use
  Company Number: B0573528A

PATIENT
  Sex: Male

DRUGS (9)
  1. LAMICTAL [Suspect]
     Indication: EPILEPSY
     Dosage: 50MG PER DAY
     Route: 048
     Dates: start: 20090409, end: 20090507
  2. UNKNOWN DRUG [Suspect]
     Indication: DRUG USE FOR UNKNOWN INDICATION
     Route: 065
  3. ALEVIATIN [Concomitant]
     Indication: EPILEPSY
     Route: 048
  4. CARBAMAZEPINE [Concomitant]
     Indication: EPILEPSY
     Route: 048
     Dates: start: 20090508
  5. CEROCRAL [Concomitant]
     Indication: EPILEPSY
     Route: 048
     Dates: start: 20090508
  6. DEPAKENE [Concomitant]
     Indication: EPILEPSY
     Route: 048
  7. PROLMON [Concomitant]
     Indication: EPILEPSY
     Route: 048
     Dates: start: 20090508
  8. DIAZEPAM [Concomitant]
     Indication: EPILEPSY
     Route: 048
     Dates: start: 20090508
  9. GABAPENTIN [Concomitant]
     Indication: EPILEPSY
     Route: 048
     Dates: start: 20090409, end: 20090508

REACTIONS (7)
  - EOSINOPHILIA [None]
  - ERYTHEMA [None]
  - HEPATIC FUNCTION ABNORMAL [None]
  - OROPHARYNGEAL PAIN [None]
  - PYREXIA [None]
  - RASH [None]
  - VIRAL INFECTION [None]
